FAERS Safety Report 9641806 (Version 2)
Quarter: 2013Q4

REPORT INFORMATION
  Report Type: Spontaneous
  Country: AT (occurrence: AT)
  Receive Date: 20131023
  Receipt Date: 20131023
  Transmission Date: 20140711
  Serious: Yes (Other)
  Sender: FDA-Public Use
  Company Number: AT-BAYER-2013-110812

PATIENT
  Age: 30 Year
  Sex: Female
  Weight: 52 kg

DRUGS (1)
  1. MIRENA [Suspect]
     Indication: CONTRACEPTION
     Dosage: 20 MCG/24HR, CONT
     Route: 015
     Dates: start: 20120411

REACTIONS (4)
  - Amenorrhoea [None]
  - Ectopic pregnancy with contraceptive device [Recovered/Resolved]
  - Drug ineffective [None]
  - Peritoneal haemorrhage [None]
